FAERS Safety Report 23265664 (Version 1)
Quarter: 2023Q4

REPORT INFORMATION
  Report Type: Spontaneous
  Country: US (occurrence: US)
  Receive Date: 20231206
  Receipt Date: 20231206
  Transmission Date: 20240109
  Serious: No
  Sender: FDA-Public Use
  Company Number: US-drreddys-SPO/USA/23/0187053

PATIENT
  Age: 62 Year
  Sex: Female

DRUGS (1)
  1. SAPROPTERIN DIHYDROCHLORIDE [Suspect]
     Active Substance: SAPROPTERIN DIHYDROCHLORIDE
     Indication: Phenylketonuria
     Dosage: 1400 MG DAILY
     Route: 048
     Dates: start: 20231011

REACTIONS (2)
  - Brain fog [Not Recovered/Not Resolved]
  - Mental disorder [Not Recovered/Not Resolved]
